FAERS Safety Report 25238599 (Version 1)
Quarter: 2025Q2

REPORT INFORMATION
  Report Type: Report from Study
  Country: ES (occurrence: ES)
  Receive Date: 20250425
  Receipt Date: 20250425
  Transmission Date: 20250716
  Serious: Yes (Death, Other)
  Sender: ROCHE
  Company Number: ES-ROCHE-10000263150

PATIENT

DRUGS (5)
  1. MYCOPHENOLATE MOFETIL [Suspect]
     Active Substance: MYCOPHENOLATE MOFETIL
     Indication: Prophylaxis against graft versus host disease
     Route: 048
  2. MYCOPHENOLATE MOFETIL [Suspect]
     Active Substance: MYCOPHENOLATE MOFETIL
     Dosage: EVERY 8 H FROM DAY 0 UNTIL DAY 30
     Route: 042
  3. TACROLIMUS [Suspect]
     Active Substance: TACROLIMUS
     Indication: Prophylaxis against graft versus host disease
     Route: 048
  4. TACROLIMUS [Suspect]
     Active Substance: TACROLIMUS
     Route: 042
  5. SIROLIMUS [Suspect]
     Active Substance: SIROLIMUS
     Indication: Prophylaxis against graft versus host disease
     Route: 048

REACTIONS (44)
  - Venoocclusive liver disease [Fatal]
  - Adenovirus test positive [Unknown]
  - Respiratory syncytial virus infection [Unknown]
  - COVID-19 [Fatal]
  - Bacteraemia [Fatal]
  - Pseudomonas infection [Unknown]
  - Infection [Fatal]
  - Gastrointestinal haemorrhage [Unknown]
  - Staphylococcal infection [Unknown]
  - Pneumocystis jirovecii infection [Unknown]
  - Cytomegalovirus test positive [Unknown]
  - Cytomegalovirus infection reactivation [Unknown]
  - Enterococcal infection [Unknown]
  - Varicella zoster virus infection [Unknown]
  - Clostridium difficile infection [Unknown]
  - Pneumococcal infection [Unknown]
  - Campylobacter infection [Unknown]
  - Staphylococcal infection [Unknown]
  - Staphylococcal infection [Unknown]
  - Klebsiella infection [Unknown]
  - Escherichia infection [Unknown]
  - Bronchopulmonary aspergillosis [Unknown]
  - Parainfluenzae virus infection [Unknown]
  - Candida infection [Unknown]
  - Metapneumovirus infection [Unknown]
  - Hepatitis B reactivation [Unknown]
  - Fungal infection [Unknown]
  - Pseudomonas infection [Unknown]
  - Influenza [Fatal]
  - Diverticulitis [Unknown]
  - Pulmonary haemorrhage [Unknown]
  - Oesophageal carcinoma [Unknown]
  - Transitional cell carcinoma [Unknown]
  - Basal cell carcinoma [Unknown]
  - Stomatitis [Unknown]
  - Urinary tract disorder [Unknown]
  - Renal disorder [Unknown]
  - Acute coronary syndrome [Unknown]
  - Hepatic fibrosis [Unknown]
  - Deep vein thrombosis [Unknown]
  - Epstein-Barr virus test positive [Unknown]
  - Gastrointestinal disorder [Unknown]
  - Cystitis haemorrhagic [Unknown]
  - Mucormycosis [Unknown]
